FAERS Safety Report 4887216-5 (Version None)
Quarter: 2005Q4

REPORT INFORMATION
  Report Type: 
  Country: None (occurrence: None)
  Receive Date: 20051223
  Receipt Date: 20050525
  Transmission Date: 20060501
  Serious: Yes (Hospitalization, Other)
  Sender: FDA-Public Use
  Company Number: US_0501111591

PATIENT
  Age: 69 Year
  Sex: Female
  Weight: 83 kg

DRUGS (2)
  1. HUMALOG MIX 75/25 [Suspect]
     Indication: DIABETES MELLITUS NON-INSULIN-DEPENDENT
     Dates: start: 20041124, end: 20041212
  2. GLYBURIDE [Concomitant]

REACTIONS (16)
  - ABNORMAL SENSATION IN EYE [None]
  - ASTHENIA [None]
  - BLINDNESS [None]
  - BLOOD GLUCOSE INCREASED [None]
  - CEREBROVASCULAR ACCIDENT [None]
  - CHEST PAIN [None]
  - CONSTIPATION [None]
  - CONVULSION [None]
  - DYSSTASIA [None]
  - HYPERHIDROSIS [None]
  - MUSCLE SPASTICITY [None]
  - NAUSEA [None]
  - RECTAL HAEMORRHAGE [None]
  - URTICARIA [None]
  - VOMITING [None]
  - WEIGHT DECREASED [None]
